FAERS Safety Report 6251053-X (Version None)
Quarter: 2009Q2

REPORT INFORMATION
  Report Type: 
  Country: None (occurrence: None)
  Receive Date: 20090630
  Receipt Date: 20081223
  Transmission Date: 20091009
  Serious: No
  Sender: FDA-Public Use
  Company Number: US-ABBOTT-08P-163-0494494-00

PATIENT
  Sex: Female
  Weight: 67.192 kg

DRUGS (13)
  1. ZEMPLAR [Suspect]
     Indication: HYPERPARATHYROIDISM
     Dates: start: 20060101, end: 20080601
  2. ZEMPLAR [Suspect]
     Dates: start: 20080601
  3. NIASPAN [Suspect]
     Indication: BLOOD TRIGLYCERIDES INCREASED
     Route: 048
     Dates: start: 20060101, end: 20080101
  4. NIASPAN [Suspect]
     Route: 048
     Dates: start: 20080101, end: 20080101
  5. NIASPAN [Suspect]
     Dates: start: 20080101, end: 20081001
  6. ASPIRIN [Suspect]
     Indication: PROPHYLAXIS
     Dates: start: 20060101, end: 20081001
  7. ASPIRIN [Suspect]
     Indication: FLUSHING
  8. LISINOPRIL [Concomitant]
     Indication: DRUG USE FOR UNKNOWN INDICATION
  9. ESTRADIOL [Concomitant]
     Indication: DRUG USE FOR UNKNOWN INDICATION
  10. AMITIZA [Concomitant]
     Indication: DRUG USE FOR UNKNOWN INDICATION
  11. RANITIDINE [Concomitant]
     Indication: DRUG USE FOR UNKNOWN INDICATION
  12. TRAZODONE HCL [Concomitant]
     Indication: DRUG USE FOR UNKNOWN INDICATION
  13. HYDROCODONE BITARTRATE [Concomitant]
     Indication: PAIN

REACTIONS (8)
  - FATIGUE [None]
  - FEELING ABNORMAL [None]
  - FLUSHING [None]
  - HEART RATE IRREGULAR [None]
  - MUSCLE FATIGUE [None]
  - MUSCULAR WEAKNESS [None]
  - PALPITATIONS [None]
  - VOMITING [None]
